FAERS Safety Report 4475960-3 (Version None)
Quarter: 2004Q3

REPORT INFORMATION
  Report Type: 
  Country: None (occurrence: None)
  Receive Date: 20040923
  Receipt Date: 20040709
  Transmission Date: 20050211
  Serious: No
  Sender: FDA-Public Use
  Company Number: USA040772309

PATIENT
  Age: 79 Year
  Sex: Female

DRUGS (4)
  1. FORTEO [Suspect]
     Dates: start: 20040708
  2. EVISTA [Suspect]
     Dates: start: 20040401
  3. ALLERGY SHOT [Concomitant]
  4. FOSAMAX (ALENDRONATE SODIUIM) [Concomitant]

REACTIONS (7)
  - ASTHENIA [None]
  - CHEST DISCOMFORT [None]
  - DIZZINESS [None]
  - FEELING HOT [None]
  - HALLUCINATION [None]
  - PAIN [None]
  - PAIN IN EXTREMITY [None]
